FAERS Safety Report 23916512 (Version 1)
Quarter: 2024Q2

REPORT INFORMATION
  Report Type: Spontaneous
  Country: US (occurrence: None)
  Receive Date: 20240528
  Receipt Date: 20240528
  Transmission Date: 20240715
  Serious: No
  Sender: FDA-Public Use
  Company Number: None

PATIENT
  Age: 71 Year
  Sex: Female
  Weight: 78.3 kg

DRUGS (2)
  1. FLUTICASONE PROPIONATE HFA [Suspect]
     Active Substance: FLUTICASONE PROPIONATE
     Indication: Wheezing
     Dates: start: 20240518, end: 20240528
  2. FLUTICASONE PROPIONATE HFA [Suspect]
     Active Substance: FLUTICASONE PROPIONATE
     Indication: Asthma

REACTIONS (4)
  - Dyspnoea [None]
  - Oropharyngeal pain [None]
  - Sinus congestion [None]
  - Cough [None]

NARRATIVE: CASE EVENT DATE: 20240526
